FAERS Safety Report 5275858-7 (Version None)
Quarter: 2007Q1

REPORT INFORMATION
  Report Type: 
  Country: None (occurrence: None)
  Receive Date: 20070326
  Receipt Date: 20070321
  Transmission Date: 20070707
  Serious: Yes (Hospitalization)
  Sender: FDA-Public Use
  Company Number: FR-GILEAD-2007-0011720

PATIENT
  Age: 50 Year
  Sex: Male
  Weight: 80 kg

DRUGS (8)
  1. TRUVADA [Suspect]
     Indication: HIV INFECTION
     Route: 048
     Dates: start: 20070207
  2. NORVIR [Suspect]
     Indication: HIV INFECTION
     Route: 048
     Dates: start: 20070207
  3. REYATAZ [Suspect]
     Indication: HIV INFECTION
     Route: 048
     Dates: start: 20070207
  4. LAMISIL [Suspect]
     Indication: FUNGAL INFECTION
     Route: 048
     Dates: start: 20070207
  5. TENORMIN [Concomitant]
     Indication: MYOCARDIAL INFARCTION
     Route: 048
  6. BACTRIM [Concomitant]
     Route: 048
     Dates: start: 20070206
  7. IMOVANE [Concomitant]
     Route: 048
     Dates: start: 20070205, end: 20070207
  8. KARDEGIC [Concomitant]
     Route: 048

REACTIONS (1)
  - DISTURBANCE IN ATTENTION [None]
